FAERS Safety Report 17468432 (Version 2)
Quarter: 2020Q1

REPORT INFORMATION
  Report Type: Spontaneous
  Country: FR (occurrence: FR)
  Receive Date: 20200227
  Receipt Date: 20200310
  Transmission Date: 20200409
  Serious: Yes (Life-Threatening, Hospitalization, Disabling, Other)
  Sender: FDA-Public Use
  Company Number: FR-COVIS PHARMA B.V.-2020COV00087

PATIENT
  Age: 37 Year
  Sex: Female

DRUGS (23)
  1. IBUPROFEN. [Suspect]
     Active Substance: IBUPROFEN
     Dosage: UNK
     Route: 048
  2. ZINC SALT [Suspect]
     Active Substance: ZINC
     Dosage: UNK
     Dates: start: 20180511
  3. TRIMEBUTINE [Suspect]
     Active Substance: TRIMEBUTINE
     Dosage: UNK
     Dates: start: 20180326
  4. SULBUTIAMINE [Suspect]
     Active Substance: SULBUTIAMINE
     Dosage: UNK
     Dates: start: 20180326
  5. BECLOMETHASONE AQUEOUS [Suspect]
     Active Substance: BECLOMETHASONE DIPROPIONATE
     Dosage: UNK
     Dates: start: 20180630
  6. ALPRAZOLAM. [Suspect]
     Active Substance: ALPRAZOLAM
     Dosage: UNK
     Dates: start: 20180320
  7. DEXTROMETHORPHAN [Suspect]
     Active Substance: DEXTROMETHORPHAN
     Dosage: UNK
     Dates: start: 20180630
  8. METRONIDAZOLE. [Suspect]
     Active Substance: METRONIDAZOLE
     Dosage: UNK
     Dates: start: 20180326
  9. CODEINE [Suspect]
     Active Substance: CODEINE
     Indication: COUGH
     Dosage: UNK
     Dates: start: 20180630
  10. TIXOCORTOL [Suspect]
     Active Substance: TIXOCORTOL PIVALATE
     Dosage: UNK
     Dates: start: 20180511
  11. ERYTHROMYCIN. [Suspect]
     Active Substance: ERYTHROMYCIN
     Dosage: UNK
     Dates: start: 20180511
  12. NICOTINE. [Suspect]
     Active Substance: NICOTINE
     Dosage: UNK
     Dates: start: 20180108
  13. OMEPRAZOLE MAGNESIUM. [Suspect]
     Active Substance: OMEPRAZOLE MAGNESIUM
     Dosage: UNK
     Route: 048
     Dates: start: 20180108
  14. NALTREXONE [Suspect]
     Active Substance: NALTREXONE
     Dosage: UNK
     Dates: start: 20180320
  15. LACTOBACILLUS ACIDOPHILUS [Suspect]
     Active Substance: LACTOBACILLUS ACIDOPHILUS
     Dosage: UNK
     Dates: start: 20180403
  16. PARACETAMOL [Suspect]
     Active Substance: ACETAMINOPHEN
     Dosage: UNK
     Dates: start: 20180412
  17. ALVERINE CITRATE [Suspect]
     Active Substance: ALVERINE CITRATE
     Dosage: UNK
     Dates: start: 20180320
  18. SULFAMETHOXAZOLE/TRIMETHOPRIM ^DAK^ [Suspect]
     Active Substance: SULFAMETHOXAZOLE\TRIMETHOPRIM
     Dosage: UNK
     Dates: start: 20180328
  19. PARACETAMOL [Suspect]
     Active Substance: ACETAMINOPHEN
     Dosage: UNK
     Dates: start: 20180707
  20. CODEINE [Suspect]
     Active Substance: CODEINE
     Dosage: UNK
     Dates: start: 20180707
  21. CARBO MEDICINALIS [Suspect]
     Active Substance: ACTIVATED CHARCOAL
     Dosage: UNK
     Dates: start: 20180320
  22. TIXOCORTOL [Suspect]
     Active Substance: TIXOCORTOL PIVALATE
     Dosage: UNK
     Dates: start: 20180630
  23. METHOCARBAMOL. [Suspect]
     Active Substance: METHOCARBAMOL
     Dosage: UNK
     Dates: start: 20180412

REACTIONS (5)
  - Beta haemolytic streptococcal infection [Recovered/Resolved]
  - Pneumonia streptococcal [Recovered/Resolved]
  - Septic shock [Recovered/Resolved with Sequelae]
  - Necrosis ischaemic [Recovered/Resolved with Sequelae]
  - Loss of consciousness [Recovered/Resolved]
